FAERS Safety Report 13101055 (Version 1)
Quarter: 2017Q1

REPORT INFORMATION
  Report Type: Spontaneous
  Country: CH (occurrence: TR)
  Receive Date: 20170110
  Receipt Date: 20170110
  Transmission Date: 20170428
  Serious: Yes (Other)
  Sender: FDA-Public Use
  Company Number: CH-LPDUSPRD-20161136

PATIENT
  Age: 78 Year
  Sex: Female

DRUGS (5)
  1. PREDNOL [Concomitant]
     Active Substance: METHYLPREDNISOLONE
     Dosage: 40 MG, 1 IN 1 DAY
     Dates: start: 20161130
  2. VENOFER [Suspect]
     Active Substance: IRON SUCROSE
     Dosage: UNSPECIFIED DOSE ONCE IN 2 DAY
     Route: 041
     Dates: start: 20161129, end: 20161130
  3. VENTOLIN [Suspect]
     Active Substance: ALBUTEROL SULFATE
     Dosage: UNKNOWN, 1 IN 1 TOTAL
     Route: 055
     Dates: start: 20161130, end: 20161130
  4. AVIL [Concomitant]
     Active Substance: PHENIRAMINE
     Dosage: 1 IN 1 DAY
     Route: 042
     Dates: start: 20161130
  5. LASIX [Concomitant]
     Active Substance: FUROSEMIDE
     Dosage: 1 IN 1 DAY
     Route: 042
     Dates: start: 20161130

REACTIONS (5)
  - Respiratory distress [Unknown]
  - Tongue oedema [Unknown]
  - Dizziness [Unknown]
  - Hypertension [Unknown]
  - Tachycardia [Unknown]

NARRATIVE: CASE EVENT DATE: 2016
